FAERS Safety Report 7159346-9 (Version None)
Quarter: 2010Q4

REPORT INFORMATION
  Report Type: 
  Country: None (occurrence: None)
  Receive Date: 20101214
  Receipt Date: 20100823
  Transmission Date: 20110411
  Serious: No
  Sender: FDA-Public Use
  Company Number: US-ASTRAZENECA-2010SE39518

PATIENT
  Age: 63 Year
  Weight: 72.6 kg

DRUGS (2)
  1. CRESTOR [Suspect]
     Route: 048
  2. DIURETIC [Concomitant]

REACTIONS (1)
  - OPHTHALMOPLEGIA [None]
